FAERS Safety Report 18359953 (Version 1)
Quarter: 2020Q4

REPORT INFORMATION
  Report Type: Spontaneous
  Country: US (occurrence: US)
  Receive Date: 20201008
  Receipt Date: 20201008
  Transmission Date: 20210114
  Serious: No
  Sender: FDA-Public Use
  Company Number: US-INDIVIOR LIMITED-INDV-122243-2019

PATIENT
  Age: 66 Year
  Sex: Male

DRUGS (1)
  1. UNSPECIFIED GENERIC BUPRENORPHINE/NALOXONE  FILM [Suspect]
     Active Substance: BUPRENORPHINE HYDROCHLORIDE\NALOXONE HYDROCHLORIDE
     Indication: DRUG DEPENDENCE
     Dosage: 4 MILLIGRAM, BID ( 4MG AM AND 4MG PM)
     Route: 065

REACTIONS (2)
  - Urinary retention [Unknown]
  - Inappropriate schedule of product administration [Not Recovered/Not Resolved]
